FAERS Safety Report 23375057 (Version 2)
Quarter: 2024Q1

REPORT INFORMATION
  Report Type: Spontaneous
  Country: DE (occurrence: DE)
  Receive Date: 20240106
  Receipt Date: 20240120
  Transmission Date: 20240410
  Serious: Yes (Death, Other)
  Sender: FDA-Public Use
  Company Number: None

PATIENT
  Age: 58 Year
  Sex: Female

DRUGS (10)
  1. TACROLIMUS [Suspect]
     Active Substance: TACROLIMUS
     Indication: Natural killer-cell leukaemia
     Route: 065
  2. RUXOLITINIB [Suspect]
     Active Substance: RUXOLITINIB
     Indication: Natural killer-cell leukaemia
     Route: 065
  3. VENETOCLAX [Suspect]
     Active Substance: VENETOCLAX
     Indication: Natural killer-cell leukaemia
     Route: 048
  4. VENETOCLAX [Suspect]
     Active Substance: VENETOCLAX
     Indication: Natural killer-cell leukaemia
     Dosage: 800 MG, QD (FIVE DAYS)
     Route: 048
  5. TACROLIMUS [Suspect]
     Active Substance: TACROLIMUS
     Indication: Prophylaxis against graft versus host disease
     Route: 065
  6. VENETOCLAX [Suspect]
     Active Substance: VENETOCLAX
     Indication: Prophylaxis
     Dosage: 800 MG, QD (FIVE DAYS)
     Route: 048
  7. RUXOLITINIB [Suspect]
     Active Substance: RUXOLITINIB
     Indication: Prophylaxis
     Dosage: 15 MG, BID
     Route: 065
  8. VENETOCLAX [Suspect]
     Active Substance: VENETOCLAX
     Indication: Prophylaxis
     Dosage: 800 MILLIGRAM
     Route: 048
  9. VENETOCLAX [Suspect]
     Active Substance: VENETOCLAX
     Indication: Natural killer-cell leukaemia
     Dosage: 800 MILLIGRAM
     Route: 048
  10. RUXOLITINIB [Suspect]
     Active Substance: RUXOLITINIB
     Indication: Natural killer-cell leukaemia
     Dosage: 15 MG, BID
     Route: 065

REACTIONS (6)
  - Off label use [Unknown]
  - Oedema [Unknown]
  - Thrombocytopenia [Unknown]
  - Neutropenia [Unknown]
  - Natural killer-cell leukaemia [Fatal]
  - Malignant neoplasm progression [Fatal]
